FAERS Safety Report 7243459-7 (Version None)
Quarter: 2011Q1

REPORT INFORMATION
  Report Type: 
  Country: None (occurrence: None)
  Receive Date: 20110118
  Receipt Date: 20110103
  Transmission Date: 20110831
  Serious: Yes (Other)
  Sender: FDA-Public Use
  Company Number: 2011000025

PATIENT
  Age: 51 Year
  Sex: Female
  Weight: 64 kg

DRUGS (9)
  1. HYDROCHLOROTHIAZIDE [Concomitant]
  2. OXYCODONE HCL [Concomitant]
  3. OXYCONTIN [Concomitant]
  4. GEMZAR [Suspect]
     Dosage: (IV WEEKLY)
     Route: 042
     Dates: end: 20100731
  5. TARCEVA [Suspect]
     Indication: PANCREATIC CARCINOMA
     Dosage: (100 MG, DAILY), ORAL
     Route: 048
     Dates: start: 20100317, end: 20100731
  6. AMLODIPINE [Concomitant]
  7. PANCREAS MT 10 (NORTASE) [Concomitant]
  8. CELEBREX [Concomitant]
  9. PREDNISONE TAB [Concomitant]

REACTIONS (1)
  - CONVULSION [None]
